FAERS Safety Report 19737939 (Version 1)
Quarter: 2021Q3

REPORT INFORMATION
  Report Type: Spontaneous
  Country: US (occurrence: US)
  Receive Date: 20210824
  Receipt Date: 20210824
  Transmission Date: 20211014
  Serious: No
  Sender: FDA-Public Use
  Company Number: US-BEH-2021135140

PATIENT
  Sex: Female

DRUGS (5)
  1. METOPROLOL. [Concomitant]
     Active Substance: METOPROLOL
     Dosage: 25. MILLIGRAM
  2. CALCIUM + VIT D [Concomitant]
     Active Substance: CALCIUM\VITAMIN D
  3. VITAMIN B12 [Concomitant]
     Active Substance: CYANOCOBALAMIN
  4. SIMVASTATIN. [Concomitant]
     Active Substance: SIMVASTATIN
  5. HIZENTRA [Suspect]
     Active Substance: HUMAN IMMUNOGLOBULIN G
     Indication: IMMUNODEFICIENCY
     Dosage: 14 GRAM, QOW [EVERY 2 WEEKS]
     Route: 058

REACTIONS (3)
  - Dental implantation [Recovered/Resolved]
  - Discomfort [Recovered/Resolved]
  - Fatigue [Recovered/Resolved]
